FAERS Safety Report 7387255-9 (Version None)
Quarter: 2011Q1

REPORT INFORMATION
  Report Type: 
  Country: None (occurrence: None)
  Receive Date: 20110331
  Receipt Date: 20110328
  Transmission Date: 20110831
  Serious: Yes (Other)
  Sender: FDA-Public Use
  Company Number: JP-PFIZER INC-2010140415

PATIENT
  Age: 62 Year
  Sex: Male

DRUGS (2)
  1. ZOLOFT [Concomitant]
     Indication: DEPRESSION
     Dosage: UNK
     Route: 048
     Dates: start: 20090101
  2. CHAMPIX [Suspect]
     Dosage: UNK
     Route: 048
     Dates: start: 20100601

REACTIONS (1)
  - INAPPROPRIATE ANTIDIURETIC HORMONE SECRETION [None]
